FAERS Safety Report 5823548-1 (Version None)
Quarter: 2008Q3

REPORT INFORMATION
  Report Type: 
  Country: None (occurrence: None)
  Receive Date: 20080725
  Receipt Date: 20080708
  Transmission Date: 20090109
  Serious: No
  Sender: FDA-Public Use
  Company Number: US-BOEHRINGER INGELHEIM GMBH, GERMANY-2008-BP-09662BP

PATIENT
  Sex: Female

DRUGS (7)
  1. SPIRIVA [Suspect]
     Indication: CHRONIC OBSTRUCTIVE PULMONARY DISEASE
     Dates: start: 20000101
  2. SPIRIVA [Suspect]
     Indication: BRONCHITIS
  3. ADVAIR DISKUS 100/50 [Concomitant]
     Indication: DYSPNOEA
     Dosage: 100/50 LOT NUMBER 82P5946
  4. LEVOXYL [Concomitant]
  5. DILTIAZEM HCL [Concomitant]
  6. LISINOPRIL [Concomitant]
  7. LORAZEPAM [Concomitant]

REACTIONS (1)
  - HEADACHE [None]
